FAERS Safety Report 16126006 (Version 4)
Quarter: 2019Q2

REPORT INFORMATION
  Report Type: Spontaneous
  Country: AE (occurrence: AE)
  Receive Date: 20190328
  Receipt Date: 20190426
  Transmission Date: 20190711
  Serious: Yes (Hospitalization, Other)
  Sender: FDA-Public Use
  Company Number: AE-AMGEN-ARESP2019047484

PATIENT
  Age: 39 Year
  Sex: Female

DRUGS (6)
  1. DOXYCYCLINE HYCLATE. [Concomitant]
     Active Substance: DOXYCYCLINE HYCLATE
     Indication: PROPHYLAXIS
     Dosage: 100 MILLIGRAM, BID (TWO CAPSULES TWICE DAILY FOR 7 DAYS)
     Route: 048
     Dates: start: 20190401, end: 20190407
  2. PARACETAMOL [Concomitant]
     Active Substance: ACETAMINOPHEN
     Indication: PAIN
     Dosage: 500 MG, (2 TABLETS 4 TIMES A DAY, FOR 7 DAYS)
     Route: 048
     Dates: start: 20190323, end: 20190329
  3. ENBREL [Suspect]
     Active Substance: ETANERCEPT
     Indication: RHEUMATOID ARTHRITIS
     Dosage: 50 MILLIGRAM, QWK
     Route: 058
     Dates: start: 20170320
  4. PANTOPRAZOL [Concomitant]
     Active Substance: PANTOPRAZOLE SODIUM
     Indication: DYSPEPSIA
     Dosage: 40 MILLIGRAM, QD (1 TABLET DAILY AS PER REQUIRED)
     Route: 048
  5. DUPHALAC [Concomitant]
     Active Substance: LACTULOSE
     Indication: CONSTIPATION
     Dosage: 30 MILLILITER, QD (AS PER REQUIRED)
     Route: 048
  6. IBUPROFEN. [Concomitant]
     Active Substance: IBUPROFEN
     Indication: PAIN
     Dosage: 400 MILLIGRAM, BID (ONE TABLET TWICE DAILY FOR 7 DAYS)
     Route: 048
     Dates: start: 20190323, end: 20190329

REACTIONS (2)
  - Pancreatitis [Recovered/Resolved]
  - Cholecystitis [Recovered/Resolved]

NARRATIVE: CASE EVENT DATE: 20190315
